FAERS Safety Report 21514081 (Version 1)
Quarter: 2022Q4

REPORT INFORMATION
  Report Type: Report from Study
  Country: IT (occurrence: IT)
  Receive Date: 20221027
  Receipt Date: 20221027
  Transmission Date: 20230113
  Serious: Yes (Other)
  Sender: FDA-Public Use
  Company Number: None

PATIENT
  Age: 5 Year
  Sex: Male

DRUGS (6)
  1. METHOTREXATE (METHOTREXATE SODIUM) [Suspect]
     Active Substance: METHOTREXATE SODIUM
     Indication: Acute lymphocytic leukaemia
     Dosage: 12 MG IN DATA 31/08/22, 12 MG IN DATA 07/09/22, METOTRESSATE TEVA, DURATION : 7 DAYS
     Dates: start: 20220831, end: 20220907
  2. VINCRISTINE [Suspect]
     Active Substance: VINCRISTINE
     Indication: Acute lymphocytic leukaemia
     Dosage: 1.35 MG ON 18/07, 25/07, 01/08 AND 08/08/2022, VINCRISTINA TEVA ITALY, THERAPY END DATE : NASK
     Dates: start: 20220808
  3. CYCLOPHOSPHAMIDE [Suspect]
     Active Substance: CYCLOPHOSPHAMIDE
     Indication: Acute lymphocytic leukaemia
     Dosage: 1000 MG
     Dates: start: 20220826, end: 20220826
  4. CYTARABINE [Suspect]
     Active Substance: CYTARABINE
     Indication: Acute lymphocytic leukaemia
     Dosage: 75 MG FROM DAY 29/08 TO DAY 01/09/22, 75 MG FROM 05/09 TO 08/09/22, DURATION : 10 DAYS
     Dates: start: 20220829, end: 20220908
  5. THIOGUANINE [Suspect]
     Active Substance: THIOGUANINE
     Indication: Acute lymphocytic leukaemia
     Dosage: 60 MILLIGRAM DAILY; 60 MG / DAY, DURATION : 15 DAYS
     Dates: start: 20220826, end: 20220910
  6. VARCODES [Concomitant]
     Indication: Product used for unknown indication
     Dosage: 10 MG / DAY FROM 11/07 TO 01/08/22, 5 MG / DAY FROM 02/08 TO 04/08/22, 2.5 MG / DAY FROM 05/08 TO 07
     Dates: start: 20220711, end: 20220811

REACTIONS (1)
  - Pancytopenia [Recovering/Resolving]

NARRATIVE: CASE EVENT DATE: 20220812
